FAERS Safety Report 14783006 (Version 2)
Quarter: 2018Q2

REPORT INFORMATION
  Report Type: Spontaneous
  Country: GB (occurrence: GB)
  Receive Date: 20180420
  Receipt Date: 20180427
  Transmission Date: 20180711
  Serious: Yes (Other)
  Sender: FDA-Public Use
  Company Number: GB-AUROBINDO-AUR-APL-2018-014316

PATIENT
  Age: 26 Year
  Sex: Female

DRUGS (7)
  1. METFORMIN [Suspect]
     Active Substance: METFORMIN HYDROCHLORIDE
     Indication: GESTATIONAL DIABETES
     Dosage: UNK ()
     Route: 065
  2. HUMULIN L [Suspect]
     Active Substance: INSULIN HUMAN
     Indication: GESTATIONAL DIABETES
     Dosage: UNK ()
     Route: 065
  3. HUMALOG [Suspect]
     Active Substance: INSULIN LISPRO
     Indication: GESTATIONAL DIABETES
     Dosage: ()
     Route: 065
  4. METFORMIN [Suspect]
     Active Substance: METFORMIN HYDROCHLORIDE
     Dosage: ()
     Route: 065
  5. VITAMINS NOS [Concomitant]
     Active Substance: VITAMINS
     Indication: PRODUCT USED FOR UNKNOWN INDICATION
     Route: 065
  6. COLECALCIFEROL [Concomitant]
     Active Substance: CHOLECALCIFEROL
     Indication: PRODUCT USED FOR UNKNOWN INDICATION
     Dosage: 800 MILLIGRAM, DAILY
     Route: 065
  7. CALCIUM PLUS                       /00751501/ [Concomitant]
     Indication: PRODUCT USED FOR UNKNOWN INDICATION
     Route: 065

REACTIONS (10)
  - Cholestasis of pregnancy [Unknown]
  - Off label use [Recovered/Resolved]
  - Foetal hypokinesia [Unknown]
  - Exposure during pregnancy [Recovered/Resolved]
  - Somnolence [Unknown]
  - Sleep disorder [Unknown]
  - Hypoglycaemia [Recovered/Resolved]
  - Premature delivery [Unknown]
  - Maternal exposure during pregnancy [Unknown]
  - Postprandial hypoglycaemia [Recovered/Resolved]
